FAERS Safety Report 8433297-1 (Version None)
Quarter: 2012Q2

REPORT INFORMATION
  Report Type: 
  Country: None (occurrence: None)
  Receive Date: 20120613
  Receipt Date: 20120605
  Transmission Date: 20120825
  Serious: Yes (Other)
  Sender: FDA-Public Use
  Company Number: CA-ROCHE-GNE289897

PATIENT
  Sex: Female
  Weight: 92.599 kg

DRUGS (4)
  1. XOLAIR [Suspect]
     Indication: ASTHMA
     Dosage: 450 MG, Q2W
     Route: 058
     Dates: start: 20051111
  2. XOLAIR [Suspect]
     Dosage: 450 MG, Q2W
     Route: 058
     Dates: start: 20090818
  3. XOLAIR [Suspect]
     Dosage: 450 MG, Q2W
     Route: 058
     Dates: start: 20091026
  4. XOLAIR [Suspect]
     Dosage: 450 MG, Q2W
     Route: 058
     Dates: start: 20100316

REACTIONS (3)
  - ADRENAL INSUFFICIENCY [None]
  - VITAMIN B12 DEFICIENCY [None]
  - INFECTIOUS MONONUCLEOSIS [None]
